FAERS Safety Report 7743652-0 (Version None)
Quarter: 2011Q3

REPORT INFORMATION
  Report Type: 
  Country: None (occurrence: None)
  Receive Date: 20110912
  Receipt Date: 20110831
  Transmission Date: 20111222
  Serious: Yes (Hospitalization, Other)
  Sender: FDA-Public Use
  Company Number: US-MERCK-1106USA03114

PATIENT
  Age: 71 Year
  Sex: Female
  Weight: 85 kg

DRUGS (6)
  1. LEVOXYL [Concomitant]
     Indication: THYROID DISORDER
     Route: 065
     Dates: start: 19880101
  2. FOSAMAX [Suspect]
     Indication: OSTEOPOROSIS
     Route: 048
     Dates: start: 19960101, end: 20100101
  3. FOSAMAX [Suspect]
     Route: 048
     Dates: end: 20100203
  4. FOSAMAX [Suspect]
     Route: 048
     Dates: start: 20040526, end: 20070206
  5. DYAZIDE [Concomitant]
     Indication: HYPERTENSION
     Route: 065
     Dates: start: 19860101
  6. OS-CAL [Concomitant]
     Indication: VITAMIN D DEFICIENCY
     Route: 048
     Dates: start: 19610101

REACTIONS (13)
  - WEIGHT DECREASED [None]
  - SPINAL OSTEOARTHRITIS [None]
  - BLOOD CHOLESTEROL INCREASED [None]
  - BODY HEIGHT DECREASED [None]
  - INTERSTITIAL LUNG DISEASE [None]
  - DIABETES MELLITUS [None]
  - DEMENTIA [None]
  - FEMUR FRACTURE [None]
  - OESTROGEN DEFICIENCY [None]
  - SPINAL COMPRESSION FRACTURE [None]
  - AORTIC ARTERIOSCLEROSIS [None]
  - NIGHT SWEATS [None]
  - RASH MACULAR [None]
